FAERS Safety Report 10704086 (Version 1)
Quarter: 2015Q1

REPORT INFORMATION
  Report Type: Spontaneous
  Country: CH (occurrence: CH)
  Receive Date: 20150112
  Receipt Date: 20150112
  Transmission Date: 20150721
  Serious: Yes (Hospitalization)
  Sender: FDA-Public Use
  Company Number: CH-SA-2015SA002920

PATIENT
  Age: 88 Year
  Sex: Female
  Weight: 67 kg

DRUGS (9)
  1. MINITRAN [Concomitant]
     Active Substance: NITROGLYCERIN
     Dosage: STRENGTH: 18 MG
     Route: 062
  2. VALTREX [Suspect]
     Active Substance: VALACYCLOVIR HYDROCHLORIDE
     Route: 048
     Dates: start: 20141130, end: 20141202
  3. CIPRALEX [Concomitant]
     Active Substance: ESCITALOPRAM OXALATE
     Dosage: STRENGTH:10 MG
     Route: 048
  4. PANTOZOL [Concomitant]
     Active Substance: PANTOPRAZOLE SODIUM
     Dosage: ENTERIC COATED TABLET, STRENGTH: 40 MG
     Route: 048
  5. LASIX [Suspect]
     Active Substance: FUROSEMIDE
     Route: 048
     Dates: end: 20141202
  6. SEROQUEL [Concomitant]
     Active Substance: QUETIAPINE FUMARATE
     Dosage: STRENGTH: 25 MG
     Route: 048
  7. METOLAZONE. [Suspect]
     Active Substance: METOLAZONE
     Route: 048
     Dates: end: 20141202
  8. ASPIRIN CARDIO [Concomitant]
     Active Substance: ASPIRIN
     Dosage: STRENGTH: 100 MG
     Route: 048
  9. ATENOLOL. [Concomitant]
     Active Substance: ATENOLOL
     Route: 048

REACTIONS (3)
  - Disorientation [Recovered/Resolved]
  - Chronic kidney disease [Recovering/Resolving]
  - Confusional state [Recovered/Resolved]

NARRATIVE: CASE EVENT DATE: 201412
